FAERS Safety Report 18317888 (Version 1)
Quarter: 2020Q3

REPORT INFORMATION
  Report Type: Spontaneous
  Country: US (occurrence: US)
  Receive Date: 20200925
  Receipt Date: 20200925
  Transmission Date: 20201103
  Serious: Yes (Other)
  Sender: FDA-Public Use
  Company Number: None

PATIENT
  Age: 52 Year
  Sex: Female
  Weight: 116.1 kg

DRUGS (12)
  1. ABILIFY [Concomitant]
     Active Substance: ARIPIPRAZOLE
  2. LORAZEPAM. [Concomitant]
     Active Substance: LORAZEPAM
  3. IBUPROFEN. [Concomitant]
     Active Substance: IBUPROFEN
  4. CLONIDINE. [Concomitant]
     Active Substance: CLONIDINE
  5. LETROZOLE. [Concomitant]
     Active Substance: LETROZOLE
  6. CITALOPRAM [Concomitant]
     Active Substance: CITALOPRAM HYDROBROMIDE
  7. FUROSEMIDE. [Concomitant]
     Active Substance: FUROSEMIDE
  8. ONDANSETRON [Concomitant]
     Active Substance: ONDANSETRON
  9. TRAMADOL. [Concomitant]
     Active Substance: TRAMADOL
  10. PIQRAY [Suspect]
     Active Substance: ALPELISIB
     Indication: BREAST CANCER
     Route: 048
     Dates: start: 20200331
  11. COPAXONE [Concomitant]
     Active Substance: GLATIRAMER ACETATE
  12. LUPRON DEPOT [Concomitant]
     Active Substance: LEUPROLIDE ACETATE

REACTIONS (2)
  - Drug ineffective [None]
  - Nausea [None]

NARRATIVE: CASE EVENT DATE: 20200925
